FAERS Safety Report 19696597 (Version 5)
Quarter: 2022Q1

REPORT INFORMATION
  Report Type: Report from Study
  Country: CN (occurrence: CN)
  Receive Date: 20210812
  Receipt Date: 20220309
  Transmission Date: 20220423
  Serious: Yes (Hospitalization)
  Sender: FDA-Public Use
  Company Number: CN-GILEAD-2021-0543860

PATIENT
  Sex: Male
  Weight: 67 kg

DRUGS (8)
  1. COBICISTAT\ELVITEGRAVIR\EMTRICITABINE\TENOFOVIR [Suspect]
     Active Substance: COBICISTAT\ELVITEGRAVIR\EMTRICITABINE\TENOFOVIR
     Indication: HIV infection
     Dosage: 1 DOSAGE FORM, QD
     Route: 048
     Dates: start: 20210119, end: 20210629
  2. COLCHICINE [Concomitant]
     Active Substance: COLCHICINE
     Indication: Gout
     Dosage: UNK
     Route: 048
     Dates: start: 202011
  3. URSODIOL [Concomitant]
     Active Substance: URSODIOL
     Indication: Hepatic failure
     Route: 048
     Dates: start: 20210629, end: 20210814
  4. SHU GAN NING [Concomitant]
     Indication: Hepatic function abnormal
     Route: 041
     Dates: start: 20210629, end: 20210629
  5. COMPOUND AMMONIUM GLYCYRRHIZINATE S [Concomitant]
     Indication: Hepatic function abnormal
     Route: 041
     Dates: start: 20210629, end: 20210706
  6. ADEMETIONINE BUTANEDISULFONATE [Concomitant]
     Active Substance: ADEMETIONINE BUTANEDISULFONATE
     Indication: Hepatic function abnormal
     Route: 042
     Dates: start: 20210629, end: 20210814
  7. DIISOPROPYLAMINE DICHLOROACETATE;GLUCONATE SODIUM [Concomitant]
     Indication: Hepatic function abnormal
     Route: 041
     Dates: start: 20210629, end: 20210814
  8. BOZHI GLYCOPEPTIDE [Concomitant]
     Indication: Hepatic function abnormal
     Route: 041
     Dates: start: 20210629, end: 20210726

REACTIONS (2)
  - Drug-induced liver injury [Recovering/Resolving]
  - Hypokalaemia [Not Recovered/Not Resolved]

NARRATIVE: CASE EVENT DATE: 20210628
